FAERS Safety Report 12701086 (Version 1)
Quarter: 2016Q3

REPORT INFORMATION
  Report Type: Spontaneous
  Country: US (occurrence: None)
  Receive Date: 20160830
  Receipt Date: 20160830
  Transmission Date: 20161109
  Serious: Yes (Other)
  Sender: FDA-Public Use
  Company Number: None

PATIENT
  Age: 75 Year
  Sex: Female
  Weight: 60.78 kg

DRUGS (9)
  1. LOSARTAN. [Concomitant]
     Active Substance: LOSARTAN
  2. LEVOTHYROXINE. [Concomitant]
     Active Substance: LEVOTHYROXINE
  3. XALATAN [Concomitant]
     Active Substance: LATANOPROST
  4. NORVASC [Suspect]
     Active Substance: AMLODIPINE BESYLATE
     Indication: HYPERTENSION
     Route: 048
  5. CALCIUM +D [Concomitant]
     Active Substance: CALCIUM\VITAMIN D
  6. COD LIVER OIL [Concomitant]
     Active Substance: COD LIVER OIL
  7. BOIRON HOMEOPATHIC REMEDY [Concomitant]
  8. VITAMIN C [Concomitant]
     Active Substance: ASCORBIC ACID
  9. BREWER^S YEAST [Concomitant]

REACTIONS (2)
  - Pain in extremity [None]
  - Activities of daily living impaired [None]

NARRATIVE: CASE EVENT DATE: 20160823
